FAERS Safety Report 26211673 (Version 1)
Quarter: 2025Q4

REPORT INFORMATION
  Report Type: Spontaneous
  Country: US (occurrence: US)
  Receive Date: 20251230
  Receipt Date: 20251230
  Transmission Date: 20260118
  Serious: No
  Sender: TEVA
  Company Number: US-TEVA-VS-3404282

PATIENT
  Age: 68 Year
  Sex: Female

DRUGS (1)
  1. LEVALBUTEROL TARTRATE [Suspect]
     Active Substance: LEVALBUTEROL TARTRATE
     Indication: Product used for unknown indication
     Dosage: INHALATION METERED DOSE AEROSOL, STRENGTH - 45MCG/DOSE
     Route: 055

REACTIONS (1)
  - Throat tightness [Unknown]
